FAERS Safety Report 25559143 (Version 1)
Quarter: 2025Q3

REPORT INFORMATION
  Report Type: Other
  Country: US (occurrence: US)
  Receive Date: 20250715
  Receipt Date: 20250715
  Transmission Date: 20251020
  Serious: Yes (Other)
  Sender: MADRIGAL PHARMACEUTICALS
  Company Number: US-MADRIGAL PHARMACEUTICALS, INC-2025REZ6030

PATIENT

DRUGS (33)
  1. REZDIFFRA [Suspect]
     Active Substance: RESMETIROM
     Indication: Metabolic dysfunction-associated steatohepatitis
     Dosage: 100 MILLIGRAM, QD
     Route: 048
     Dates: start: 2025
  2. REZDIFFRA [Suspect]
     Active Substance: RESMETIROM
     Indication: Hepatic steatosis
  3. DOXYCYCLINE HYCLATE [Concomitant]
     Active Substance: DOXYCYCLINE HYCLATE
  4. DICYCLOMINE HYDROCHLORIDE [Concomitant]
     Active Substance: DICYCLOMINE HYDROCHLORIDE
  5. CYANOCOBALAMIN [Concomitant]
     Active Substance: CYANOCOBALAMIN
  6. PROTONIX [Concomitant]
     Active Substance: PANTOPRAZOLE SODIUM
  7. ATENOLOL [Concomitant]
     Active Substance: ATENOLOL
  8. ASPIRIN [Concomitant]
     Active Substance: ASPIRIN
  9. FLONASE ALLERGY RELIEF [Concomitant]
     Active Substance: FLUTICASONE PROPIONATE
  10. BUMETANIDE [Concomitant]
     Active Substance: BUMETANIDE
  11. SYMBICORT [Concomitant]
     Active Substance: BUDESONIDE\FORMOTEROL FUMARATE DIHYDRATE
  12. PEPCID [Concomitant]
     Active Substance: FAMOTIDINE
  13. CRESTOR [Concomitant]
     Active Substance: ROSUVASTATIN CALCIUM
  14. ALBUTEROL SULFATE [Concomitant]
     Active Substance: ALBUTEROL SULFATE
  15. METFORMIN HYDROCHLORIDE [Concomitant]
     Active Substance: METFORMIN HYDROCHLORIDE
  16. AMLODIPINE BESYLATE [Concomitant]
     Active Substance: AMLODIPINE BESYLATE
  17. AZITHROMYCIN [Concomitant]
     Active Substance: AZITHROMYCIN
  18. AZITHROMYCIN [Concomitant]
     Active Substance: AZITHROMYCIN
  19. Centrum adults [Concomitant]
  20. LISINOPRIL [Concomitant]
     Active Substance: LISINOPRIL
  21. JARDIANCE [Concomitant]
     Active Substance: EMPAGLIFLOZIN
  22. VITAMIN C [Concomitant]
     Active Substance: ASCORBIC ACID
  23. IRON [Concomitant]
     Active Substance: IRON
  24. VITAMIN D3 [Concomitant]
     Active Substance: CHOLECALCIFEROL
  25. DIETARY SUPPLEMENT\HERBALS\MILK THISTLE [Concomitant]
     Active Substance: MILK THISTLE
  26. ZYRTEC [Concomitant]
     Active Substance: CETIRIZINE HYDROCHLORIDE
  27. MECLIZINE HYDROCHLORIDE [Concomitant]
     Active Substance: MECLIZINE HYDROCHLORIDE
  28. OMEGA-3 ACIDS [Concomitant]
     Active Substance: OMEGA-3 FATTY ACIDS
  29. EPIPEN [Concomitant]
     Active Substance: EPINEPHRINE
  30. VITAMIN D2 [Concomitant]
     Active Substance: ERGOCALCIFEROL
  31. CARAFATE [Concomitant]
     Active Substance: SUCRALFATE
  32. XOLAIR [Concomitant]
     Active Substance: OMALIZUMAB
  33. GEMFIBROZIL [Concomitant]
     Active Substance: GEMFIBROZIL

REACTIONS (5)
  - Thrombosis [Unknown]
  - Inflammation [Unknown]
  - Retinal migraine [Not Recovered/Not Resolved]
  - Yellow skin [Recovered/Resolved]
  - Arthritis [Unknown]

NARRATIVE: CASE EVENT DATE: 20250101
